FAERS Safety Report 20026873 (Version 3)
Quarter: 2021Q4

REPORT INFORMATION
  Report Type: Report from Study
  Country: CH (occurrence: CH)
  Receive Date: 20211103
  Receipt Date: 20211130
  Transmission Date: 20220304
  Serious: Yes (Hospitalization, Other)
  Sender: FDA-Public Use
  Company Number: CH-ABBVIE-21K-151-4140960-00

PATIENT
  Age: 77 Year
  Sex: Male

DRUGS (2)
  1. CARBIDOPA\LEVODOPA [Suspect]
     Active Substance: CARBIDOPA\LEVODOPA
     Indication: Parkinson^s disease
     Dosage: MD: 6.0 ML, CRD: 6.2 ML/H, CRN: 6.2 ML/H, ED: 3.0 ML, 24H THERAPY
     Route: 050
     Dates: start: 20211020, end: 20211028
  2. CARBIDOPA\LEVODOPA [Suspect]
     Active Substance: CARBIDOPA\LEVODOPA
     Dosage: MD: 6.0 ML, CRD: 6.6 ML/H, CRN: 4.0 ML/H, ED: 3.2 ML, 24H THERAPY
     Route: 050
     Dates: start: 20211028

REACTIONS (7)
  - Depressed level of consciousness [Recovering/Resolving]
  - Asthenia [Unknown]
  - Feeding disorder [Unknown]
  - Nutritional supplementation [Unknown]
  - Oxygen saturation decreased [Unknown]
  - Akinesia [Not Recovered/Not Resolved]
  - Dysphagia [Recovering/Resolving]

NARRATIVE: CASE EVENT DATE: 20211001
